FAERS Safety Report 6199142-2 (Version None)
Quarter: 2009Q2

REPORT INFORMATION
  Report Type: 
  Country: None (occurrence: None)
  Receive Date: 20090522
  Receipt Date: 20090518
  Transmission Date: 20091009
  Serious: Yes (Hospitalization, Disabling)
  Sender: FDA-Public Use
  Company Number: DK-ROCHE-494325

PATIENT
  Sex: Male
  Weight: 21.5 kg

DRUGS (7)
  1. TORADOL [Suspect]
     Route: 042
     Dates: start: 20070330, end: 20070330
  2. TORADOL [Suspect]
     Route: 042
     Dates: start: 20080330, end: 20080330
  3. ULTIVA [Concomitant]
     Indication: ANAESTHESIA
     Route: 042
     Dates: start: 20070330, end: 20070330
  4. PROPOFOL [Concomitant]
     Indication: ANAESTHESIA
     Route: 042
     Dates: start: 20070330, end: 20070330
  5. ATROPIN [Concomitant]
     Indication: ANAESTHESIA
     Route: 042
     Dates: start: 20070330, end: 20070330
  6. MARCAINE [Concomitant]
     Indication: ANAESTHESIA
     Route: 042
     Dates: start: 20070330, end: 20070330
  7. ZOFRAN [Concomitant]
     Route: 042
     Dates: start: 20070330, end: 20070330

REACTIONS (8)
  - ABDOMINAL PAIN UPPER [None]
  - BLADDER DILATATION [None]
  - BLOOD PRESSURE INCREASED [None]
  - DYSPNOEA [None]
  - POLYURIA [None]
  - PYREXIA [None]
  - RENAL IMPAIRMENT [None]
  - THIRST [None]
